FAERS Safety Report 20857851 (Version 7)
Quarter: 2023Q1

REPORT INFORMATION
  Report Type: Spontaneous
  Country: CA (occurrence: CA)
  Receive Date: 20220521
  Receipt Date: 20230326
  Transmission Date: 20230418
  Serious: Yes (Other)
  Sender: FDA-Public Use
  Company Number: CA-CELLTRION INC.-2022CA007175

PATIENT

DRUGS (7)
  1. INFLECTRA [Suspect]
     Active Substance: INFLIXIMAB-DYYB
     Indication: Crohn^s disease
     Dosage: 400MG Q 0, 2, 6 THEN, Q 8 WEEKS
     Route: 042
     Dates: start: 20220131, end: 20230213
  2. INFLECTRA [Suspect]
     Active Substance: INFLIXIMAB-DYYB
     Dosage: 400MG Q 0, 2, 6 THEN, Q 8 WEEKS
     Route: 042
     Dates: start: 20220316
  3. INFLECTRA [Suspect]
     Active Substance: INFLIXIMAB-DYYB
     Dosage: 400MG Q 0, 2, 6 THEN, Q 8 WEEKS
     Route: 042
     Dates: start: 20220510
  4. INFLECTRA [Suspect]
     Active Substance: INFLIXIMAB-DYYB
     Dosage: 400MG Q 0, 2, 6 THEN, Q 8 WEEKS
     Route: 042
     Dates: start: 20220707
  5. INFLECTRA [Suspect]
     Active Substance: INFLIXIMAB-DYYB
     Dosage: 400MG Q 0, 2, 6 THEN, Q 8 WEEKS
     Route: 042
     Dates: start: 20220830
  6. INFLECTRA [Suspect]
     Active Substance: INFLIXIMAB-DYYB
     Dosage: 400MG Q 0, 2, 6 THEN, Q 8 WEEKS
     Route: 042
     Dates: start: 20221025
  7. INFLECTRA [Suspect]
     Active Substance: INFLIXIMAB-DYYB
     Dosage: 400MG Q 0, 2, 6 THEN, Q 8 WEEKS
     Route: 042
     Dates: start: 20221219

REACTIONS (3)
  - Condition aggravated [Recovering/Resolving]
  - Drug level below therapeutic [Not Recovered/Not Resolved]
  - Off label use [Unknown]

NARRATIVE: CASE EVENT DATE: 20220510
